FAERS Safety Report 17629713 (Version 2)
Quarter: 2020Q2

REPORT INFORMATION
  Report Type: Spontaneous
  Country: US (occurrence: US)
  Receive Date: 20200406
  Receipt Date: 20200515
  Transmission Date: 20200713
  Serious: No
  Sender: FDA-Public Use
  Company Number: US-ASTRAZENECA-2020SE42784

PATIENT
  Age: 31212 Day
  Sex: Female
  Weight: 105.2 kg

DRUGS (20)
  1. BYDUREON BCISE [Suspect]
     Active Substance: EXENATIDE
     Indication: DIABETIC NEUROPATHY
     Dosage: 2 MG/0.85 ML ONCE A WEEK
     Route: 058
     Dates: start: 20200205
  2. BYDUREON BCISE [Suspect]
     Active Substance: EXENATIDE
     Indication: TYPE 2 DIABETES MELLITUS
     Dosage: 2 MG/0.85 ML ONCE A WEEK
     Route: 058
     Dates: start: 20200205
  3. FLUTICASONE. [Concomitant]
     Active Substance: FLUTICASONE
     Dosage: DAILY
     Route: 045
  4. LASIX [Concomitant]
     Active Substance: FUROSEMIDE
     Route: 048
  5. LANTUS SOLOSTAR [Concomitant]
     Active Substance: INSULIN GLARGINE
     Dosage: 100 INIT/ML (3 ML) INJECT 20 U AT NIGHT
     Route: 058
  6. SYNTHROID [Concomitant]
     Active Substance: LEVOTHYROXINE SODIUM
     Route: 048
  7. GLUCOSAMINE-CHONDR-MSM [Concomitant]
     Route: 048
  8. FISH OIL [Concomitant]
     Active Substance: FISH OIL
     Route: 048
  9. LOW-DOSE ASPIRIN [Concomitant]
     Active Substance: ASPIRIN
     Route: 048
  10. VITAMIN D [Concomitant]
     Active Substance: VITAMIN D NOS
     Route: 048
  11. NORCO [Concomitant]
     Active Substance: ACETAMINOPHEN\HYDROCODONE BITARTRATE
     Indication: PAIN
     Dosage: 5-325 MG AS NEEDED
  12. KETONAZOLE [Concomitant]
     Active Substance: KETOCONAZOLE
     Dosage: APPLY TO AFFECTED AREA AS NEEDED
  13. ZYLOPRIM [Concomitant]
     Active Substance: ALLOPURINOL
  14. TENORMIN [Concomitant]
     Active Substance: ATENOLOL
     Route: 048
  15. TUMS [Concomitant]
     Active Substance: CALCIUM CARBONATE
     Route: 048
  16. VITAMIN B12 [Concomitant]
     Active Substance: CYANOCOBALAMIN
     Route: 048
  17. ZETIA [Concomitant]
     Active Substance: EZETIMIBE
     Route: 048
  18. NEURONTIN [Concomitant]
     Active Substance: GABAPENTIN
     Route: 048
  19. AMARYL [Concomitant]
     Active Substance: GLIMEPIRIDE
     Route: 048
  20. ALTACE [Concomitant]
     Active Substance: RAMIPRIL
     Route: 048

REACTIONS (4)
  - Device leakage [Unknown]
  - Device malfunction [Unknown]
  - Diabetes mellitus inadequate control [Recovered/Resolved]
  - Incorrect dose administered by device [Unknown]

NARRATIVE: CASE EVENT DATE: 20200312
